FAERS Safety Report 8170700-9 (Version None)
Quarter: 2012Q1

REPORT INFORMATION
  Report Type: 
  Country: None (occurrence: None)
  Receive Date: 20120228
  Receipt Date: 20120224
  Transmission Date: 20120608
  Serious: Yes (Hospitalization)
  Sender: FDA-Public Use
  Company Number: US-ELI_LILLY_AND_COMPANY-US201202007284

PATIENT
  Age: 67 Year
  Sex: Female

DRUGS (2)
  1. EFFIENT [Suspect]
     Indication: CORONARY ARTERY DISEASE
     Route: 048
  2. ACETYLSALICYLIC ACID SRT [Concomitant]

REACTIONS (3)
  - GASTROINTESTINAL HAEMORRHAGE [None]
  - DIABETIC KETOACIDOSIS [None]
  - ANAEMIA [None]
